FAERS Safety Report 7589224-2 (Version None)
Quarter: 2011Q2

REPORT INFORMATION
  Report Type: 
  Country: None (occurrence: None)
  Receive Date: 20110603
  Receipt Date: 20110125
  Transmission Date: 20111010
  Serious: No
  Sender: FDA-Public Use
  Company Number: 2011SP003708

PATIENT
  Age: 43 Year
  Sex: Male

DRUGS (15)
  1. ROZEREM [Concomitant]
  2. PLAVIX [Concomitant]
  3. ZETIA [Concomitant]
  4. L-CARNITINE [Concomitant]
  5. CO Q 10 [Concomitant]
  6. SAPHRIS [Suspect]
     Indication: DEPRESSION
     Dosage: 5 MG;BID;SL
     Route: 060
     Dates: start: 20110120, end: 20110124
  7. SAPHRIS [Suspect]
     Indication: BIPOLAR DISORDER
     Dosage: 5 MG;BID;SL
     Route: 060
     Dates: start: 20110120, end: 20110124
  8. ASPIRIN [Concomitant]
  9. KLONOPIN [Concomitant]
  10. ZOLOFT [Concomitant]
  11. MEGARED [Concomitant]
  12. LAMICTAL [Concomitant]
  13. COREG [Concomitant]
  14. ENALAPRIL MALEATE [Concomitant]
  15. SPIRONOLACTONE [Concomitant]

REACTIONS (5)
  - DIZZINESS [None]
  - DYSARTHRIA [None]
  - VISION BLURRED [None]
  - SOMNOLENCE [None]
  - FEELING ABNORMAL [None]
